FAERS Safety Report 9512068 (Version 1)
Quarter: 2013Q3

REPORT INFORMATION
  Report Type: Spontaneous
  Country: SG (occurrence: SG)
  Receive Date: 20130910
  Receipt Date: 20130910
  Transmission Date: 20140515
  Serious: Yes (Other)
  Sender: FDA-Public Use
  Company Number: SG-PFIZER INC-2013257520

PATIENT
  Age: 68 Year
  Sex: Female

DRUGS (1)
  1. AMLODIPINE BESILATE [Suspect]
     Dosage: 5 MG, 1X/DAY
     Route: 048

REACTIONS (2)
  - Rash erythematous [Not Recovered/Not Resolved]
  - Tinea cruris [Not Recovered/Not Resolved]
